FAERS Safety Report 14502403 (Version 2)
Quarter: 2018Q1

REPORT INFORMATION
  Report Type: Spontaneous
  Country: US (occurrence: US)
  Receive Date: 20180208
  Receipt Date: 20180326
  Transmission Date: 20180509
  Serious: No
  Sender: FDA-Public Use
  Company Number: US-ELI_LILLY_AND_COMPANY-US201801005414

PATIENT
  Age: 71 Year
  Sex: Female
  Weight: 110 kg

DRUGS (8)
  1. VITAMIN B COMPLEX [Concomitant]
     Active Substance: CYANOCOBALAMIN\DEXPANTHENOL\NIACINAMIDE\PYRIDOXINE HYDROCHLORIDE\RIBOFLAVIN 5^-PHOSPHATE SODIUM\THIAMINE HYDROCHLORIDE\VITAMIN B COMPLEX
  2. MELATONIN [Concomitant]
     Active Substance: MELATONIN
  3. TALTZ [Suspect]
     Active Substance: IXEKIZUMAB
     Indication: PSORIASIS
     Dosage: 80 MG, UNKNOWN
     Route: 058
     Dates: start: 20170222
  4. CURCUMIN [Concomitant]
     Active Substance: CURCUMIN
  5. OMEGA 3                            /01334101/ [Concomitant]
     Active Substance: OMEGA-3 FATTY ACIDS
  6. IRON                               /00023503/ [Concomitant]
     Active Substance: IRON
  7. VITAMIN D                          /00107901/ [Concomitant]
     Active Substance: ERGOCALCIFEROL
     Dosage: 5000 IU, UNK
  8. MAGNESIUM [Concomitant]
     Active Substance: MAGNESIUM

REACTIONS (1)
  - Lichen sclerosus [Not Recovered/Not Resolved]

NARRATIVE: CASE EVENT DATE: 20171210
